FAERS Safety Report 9260308 (Version 2)
Quarter: 2013Q2

REPORT INFORMATION
  Report Type: Spontaneous
  Country: BE (occurrence: BE)
  Receive Date: 20130429
  Receipt Date: 20130513
  Transmission Date: 20140414
  Serious: Yes (Hospitalization)
  Sender: FDA-Public Use
  Company Number: PHHY2013BE030228

PATIENT
  Sex: Female

DRUGS (9)
  1. GLIVEC [Suspect]
     Indication: CHRONIC MYELOID LEUKAEMIA
     Dosage: 400 MG, ONCE DAILY
     Route: 048
     Dates: start: 200302, end: 20030310
  2. GLIVEC [Suspect]
     Dosage: 400 MG, ONCE DAILY
     Dates: start: 20030325
  3. AROPAX [Concomitant]
     Dosage: UNK UKN, UNK
  4. ALDACTAZINE [Concomitant]
     Dosage: UNK UKN, UNK
  5. BISOPROLOL [Concomitant]
     Dosage: UNK UKN, UNK
  6. PARACETAMOL [Concomitant]
     Dosage: UNK UKN, UNK
  7. ZOROXIN [Concomitant]
     Dosage: 400 MG, BID
  8. FLAGYL [Concomitant]
     Dosage: 500 MG, BID
  9. CIPROXINE [Concomitant]
     Dosage: 500 MG, BID

REACTIONS (3)
  - Fistula [Unknown]
  - Diverticular perforation [Unknown]
  - Pyrexia [Recovered/Resolved]
